FAERS Safety Report 6427801-2 (Version None)
Quarter: 2009Q4

REPORT INFORMATION
  Report Type: 
  Country: None (occurrence: None)
  Receive Date: 20091104
  Receipt Date: 20091104
  Transmission Date: 20100525
  Serious: Yes (Other)
  Sender: FDA-Public Use
  Company Number: None

PATIENT
  Sex: Female
  Weight: 90.7194 kg

DRUGS (7)
  1. BACTRIM [Suspect]
     Indication: FUNGAL INFECTION
     Dosage: 1 2 DAILY 10 DAY
     Dates: start: 20090929, end: 20091012
  2. DOCUSATE ORAL [Suspect]
     Indication: CONSTIPATION
     Dosage: 1 2 DAILY 30 DAY
     Dates: start: 20090929, end: 20091016
  3. VITAMIN E [Concomitant]
  4. VITAMIN D [Concomitant]
  5. IRON [Concomitant]
  6. IBUPROFEN [Concomitant]
  7. TYLENOL (CAPLET) [Concomitant]

REACTIONS (21)
  - ABDOMINAL PAIN [None]
  - ANAL HAEMORRHAGE [None]
  - ARTHRALGIA [None]
  - BLOOD GLUCOSE DECREASED [None]
  - CHROMATURIA [None]
  - CONFUSIONAL STATE [None]
  - CONSTIPATION [None]
  - DYSPNOEA [None]
  - FATIGUE [None]
  - FUNGAL INFECTION [None]
  - HAEMORRHAGIC DIATHESIS [None]
  - HEADACHE [None]
  - MOOD ALTERED [None]
  - MUSCULAR WEAKNESS [None]
  - MUSCULOSKELETAL STIFFNESS [None]
  - NAUSEA [None]
  - PHARYNGEAL OEDEMA [None]
  - PYREXIA [None]
  - SPEECH DISORDER [None]
  - SWOLLEN TONGUE [None]
  - VOMITING [None]
